FAERS Safety Report 16240560 (Version 1)
Quarter: 2019Q2

REPORT INFORMATION
  Report Type: Report from Study
  Country: CA (occurrence: CA)
  Receive Date: 20190425
  Receipt Date: 20190425
  Transmission Date: 20190711
  Serious: Yes (Other)
  Sender: FDA-Public Use
  Company Number: CA-HLSUS-2019-CA-000469

PATIENT
  Sex: Female

DRUGS (26)
  1. HALDOL [Concomitant]
     Active Substance: HALOPERIDOL
     Indication: AGITATION
     Dosage: 5 MG EVERY 3 HOURS AS NEEDED, WITH ATIVAN
     Route: 030
  2. SEROQUE [Concomitant]
     Indication: ANXIETY
     Dosage: 25-50 MG 3 TIMES A DAY AS NEEDED
     Route: 048
  3. CHRONULAC [Concomitant]
     Active Substance: LACTULOSE
     Dosage: 50 ML ORALLY ONCE DAILY
     Route: 048
  4. ATIVAN [Concomitant]
     Active Substance: LORAZEPAM
     Indication: AGITATION
     Dosage: 2 MG EVERY 3 HOURS AS NEEDED.
     Route: 048
  5. SALINEX [Concomitant]
     Dosage: 1 VAP THROUGHT EH NOSTRIL AS NEEDED
     Route: 045
  6. LYRICA [Concomitant]
     Active Substance: PREGABALIN
     Dosage: 50 MG DAILY AT BREAKFAST, AND 100 MG DAILY AT BEDTIME
     Route: 048
  7. FLEET ENEMA [Concomitant]
     Active Substance: SODIUM PHOSPHATE, DIBASIC\SODIUM PHOSPHATE, MONOBASIC
     Dosage: RECTAL WASH EVERY 3 DAYS AS NEEDED
     Route: 054
  8. VITAMIN D NOS [Concomitant]
     Active Substance: VITAMIN D NOS
     Dosage: 3 TABS ONCE A WEEK
     Route: 048
  9. VENTOLIN [Concomitant]
     Active Substance: ALBUTEROL SULFATE
     Dosage: 2 INHALATIONS EVERY 4 HOURS AS NEEDED
  10. FLOVENT [Concomitant]
     Active Substance: FLUTICASONE PROPIONATE
     Dosage: 1 INHALATION TWICE DAILY
  11. GLUCOPHAGE [Concomitant]
     Active Substance: METFORMIN HYDROCHLORIDE
     Dosage: 850 MG SUPPER
     Route: 048
  12. ATIVAN [Concomitant]
     Active Substance: LORAZEPAM
     Indication: AGITATION
     Dosage: 0.5 ML EVERY 3 HOURS AS NEEDED
     Route: 030
  13. SENOKOT [Concomitant]
     Active Substance: SENNOSIDES
     Dosage: 8.6-17.2 MG ORALLY PER DAY AT BEDTIME
     Route: 048
  14. LAXADAY PEGALAX [Concomitant]
     Dosage: 1 SATCHET DAILY
     Route: 048
  15. PARAVCHOL [Concomitant]
     Dosage: 10 MG DAILY BEDTIME
     Route: 048
  16. ALDACTONE [Concomitant]
     Active Substance: SPIRONOLACTONE
     Dosage: 12.5 MG DAILY MORNING
     Route: 048
  17. COUMADIN [Concomitant]
     Active Substance: WARFARIN SODIUM
     Dosage: 6 MG DAILY
     Route: 048
  18. CYANOCOBALAMINE [Concomitant]
     Active Substance: CYANOCOBALAMIN
     Dosage: 1200 MCG THRICE WEEKLY
     Route: 048
  19. COLACE [Concomitant]
     Active Substance: DOCUSATE SODIUM
     Indication: CONSTIPATION
     Dosage: 200 MG TWICE DAILY
     Route: 048
  20. GLAXAL BASE [Concomitant]
     Indication: DRY SKIN
     Dosage: TWICE DAILY AS NEEDED
     Route: 061
  21. AEROCHAMBER [Concomitant]
     Active Substance: DEVICE
     Dosage: AS NEEDED
  22. CLOZARIL [Suspect]
     Active Substance: CLOZAPINE
     Indication: SCHIZOPHRENIA
     Dosage: 100 MG
     Route: 048
     Dates: start: 2011
  23. ATROPINE. [Concomitant]
     Active Substance: ATROPINE
     Dosage: 2 DROPS ONCE DAILY AS NEEDED
     Route: 060
  24. DULCOLAX NOS [Concomitant]
     Active Substance: BISACODYL OR DOCUSATE SODIUM
     Dosage: 10 MG EVERY 3 DAYS
     Route: 054
  25. TYLENOL [Concomitant]
     Active Substance: ACETAMINOPHEN
     Dosage: 650 MG EVERY 8 HOURS AS NEEDED
     Route: 048
  26. HALDOL [Concomitant]
     Active Substance: HALOPERIDOL
     Indication: AGITATION
     Dosage: 5 MG TAB EVERY 3 HOURS AS NEEDED, WITH ATIVAN
     Route: 048

REACTIONS (6)
  - Aggression [Unknown]
  - Psychiatric decompensation [Unknown]
  - Treatment noncompliance [Unknown]
  - Crying [Unknown]
  - Persecutory delusion [Unknown]
  - Irritability [Unknown]
